FAERS Safety Report 12197957 (Version 1)
Quarter: 2016Q1

REPORT INFORMATION
  Report Type: Spontaneous
  Country: US (occurrence: US)
  Receive Date: 20160322
  Receipt Date: 20160322
  Transmission Date: 20160526
  Serious: Yes (Hospitalization, Other)
  Sender: FDA-Public Use
  Company Number: US-JNJFOC-20160212576

PATIENT
  Sex: Female
  Weight: 74.84 kg

DRUGS (1)
  1. INVOKANA [Suspect]
     Active Substance: CANAGLIFLOZIN
     Indication: TYPE 1 DIABETES MELLITUS
     Route: 065
     Dates: end: 20160201

REACTIONS (3)
  - Product use issue [Unknown]
  - Off label use [Unknown]
  - Diabetic ketoacidosis [Recovered/Resolved]
